FAERS Safety Report 25005643 (Version 1)
Quarter: 2025Q1

REPORT INFORMATION
  Report Type: Spontaneous
  Country: US (occurrence: US)
  Receive Date: 20250224
  Receipt Date: 20250224
  Transmission Date: 20250409
  Serious: No
  Sender: SANOFI AVENTIS
  Company Number: US-SA-2025SA054169

PATIENT
  Sex: Female

DRUGS (3)
  1. DUPIXENT [Suspect]
     Active Substance: DUPILUMAB
     Indication: Dermatitis atopic
     Route: 058
     Dates: start: 2024, end: 2024
  2. DUPIXENT [Suspect]
     Active Substance: DUPILUMAB
     Dosage: 300 MG, QOW
     Route: 058
     Dates: end: 20250206
  3. DUPIXENT [Suspect]
     Active Substance: DUPILUMAB
     Dates: start: 20250206

REACTIONS (4)
  - Eczema [Recovering/Resolving]
  - Pruritus [Recovering/Resolving]
  - Oral herpes [Not Recovered/Not Resolved]
  - Dry eye [Not Recovered/Not Resolved]
